FAERS Safety Report 10314982 (Version 2)
Quarter: 2014Q3

REPORT INFORMATION
  Report Type: Report from Study
  Country: US (occurrence: US)
  Receive Date: 20140718
  Receipt Date: 20140718
  Transmission Date: 20150326
  Serious: Yes (Other)
  Sender: FDA-Public Use
  Company Number: US-ABBVIE-11P-163-0851541-00

PATIENT
  Age: 49 Year
  Sex: Male

DRUGS (6)
  1. ADVIL [Concomitant]
     Active Substance: IBUPROFEN
     Indication: PRODUCT USED FOR UNKNOWN INDICATION
  2. MULTIVITAMIN [Concomitant]
     Active Substance: VITAMINS
     Indication: PRODUCT USED FOR UNKNOWN INDICATION
  3. HUMIRA [Suspect]
     Active Substance: ADALIMUMAB
     Dates: end: 201005
  4. HUMIRA [Suspect]
     Active Substance: ADALIMUMAB
     Dates: start: 201005
  5. HUMIRA [Suspect]
     Active Substance: ADALIMUMAB
     Indication: ANKYLOSING SPONDYLITIS
     Dates: start: 2008
  6. HUMIRA [Suspect]
     Active Substance: ADALIMUMAB
     Dates: start: 201112

REACTIONS (16)
  - Nephrolithiasis [Recovered/Resolved]
  - Injection site swelling [Unknown]
  - Injection site haemorrhage [Recovered/Resolved]
  - Injection site erythema [Unknown]
  - Injection site pustule [Recovered/Resolved]
  - Musculoskeletal stiffness [Unknown]
  - Injection site vesicles [Unknown]
  - Injection site pain [Recovered/Resolved]
  - Incorrect dose administered [Unknown]
  - Oropharyngeal pain [Recovered/Resolved]
  - Neck pain [Unknown]
  - Nasopharyngitis [Recovered/Resolved]
  - Aphonia [Recovered/Resolved]
  - Device malfunction [Unknown]
  - Injection site bruising [Recovered/Resolved]
  - Injection site pain [Not Recovered/Not Resolved]

NARRATIVE: CASE EVENT DATE: 201108
